FAERS Safety Report 5018700-1 (Version None)
Quarter: 2006Q2

REPORT INFORMATION
  Report Type: 
  Country: None (occurrence: None)
  Receive Date: 20060605
  Receipt Date: 20060526
  Transmission Date: 20061013
  Serious: Yes (Hospitalization, Other)
  Sender: FDA-Public Use
  Company Number: US-ABBOTT-06P-163-0334374-00

PATIENT
  Sex: Male
  Weight: 70.824 kg

DRUGS (9)
  1. HUMIRA [Suspect]
     Indication: RHEUMATOID ARTHRITIS
     Route: 058
     Dates: start: 20030101
  2. PREDNISONE [Concomitant]
     Indication: RHEUMATOID ARTHRITIS
     Route: 048
  3. RANITIDINE [Concomitant]
     Indication: GASTRITIS
     Route: 048
  4. SIMVASTATIN [Concomitant]
     Indication: CARDIAC DISORDER
     Route: 048
  5. TERAZOSIN HCL [Concomitant]
     Indication: DRUG USE FOR UNKNOWN INDICATION
     Route: 048
  6. METHOTREXATE [Concomitant]
     Indication: ARTHRITIS
     Route: 048
  7. DIGOXIN [Concomitant]
     Indication: DRUG USE FOR UNKNOWN INDICATION
     Route: 048
  8. METOPROLOL SUCCINATE [Concomitant]
     Indication: HYPERTENSION
     Route: 048
  9. WARFARIN SODIUM [Concomitant]
     Indication: CARDIAC DISORDER
     Dosage: 5MG AND 2.5MG ALTERNATING DAYS
     Route: 048

REACTIONS (1)
  - CAROTID ARTERY OCCLUSION [None]
